FAERS Safety Report 22600526 (Version 3)
Quarter: 2023Q2

REPORT INFORMATION
  Report Type: Report from Study
  Country: CO (occurrence: CO)
  Receive Date: 20230614
  Receipt Date: 20230616
  Transmission Date: 20230721
  Serious: Yes (Life-Threatening, Other)
  Sender: FDA-Public Use
  Company Number: CO-UCBSA-2023027330

PATIENT
  Age: 61 Year
  Sex: Female

DRUGS (2)
  1. BRIVARACETAM [Suspect]
     Active Substance: BRIVARACETAM
     Indication: Epilepsy
     Dosage: 100 MILLIGRAM, 2X/DAY (BID) (EVERY 12 HOURS)
     Route: 048
     Dates: start: 20230126, end: 20230518
  2. DIVALPROEX SODIUM [Concomitant]
     Active Substance: DIVALPROEX SODIUM
     Indication: Epilepsy
     Dosage: UNK
     Route: 048

REACTIONS (5)
  - Suicide attempt [Recovered/Resolved]
  - Depression [Recovered/Resolved]
  - Dysarthria [Recovered/Resolved]
  - Gait disturbance [Recovered/Resolved]
  - Vertigo [Recovered/Resolved]

NARRATIVE: CASE EVENT DATE: 20230415
